FAERS Safety Report 10238433 (Version 1)
Quarter: 2014Q2

REPORT INFORMATION
  Report Type: Spontaneous
  Country: GB (occurrence: None)
  Receive Date: 20140612
  Receipt Date: 20140612
  Transmission Date: 20141212
  Serious: Yes (Other)
  Sender: FDA-Public Use
  Company Number: CL-568-2014

PATIENT
  Age: 67 Year
  Sex: Female

DRUGS (1)
  1. LEVOFLOXACIN [Suspect]
     Indication: ENDOPHTHALMITIS
     Route: 042

REACTIONS (3)
  - Vanishing bile duct syndrome [None]
  - Cholestasis [None]
  - Drug-induced liver injury [None]
